FAERS Safety Report 6911183-3 (Version None)
Quarter: 2010Q3

REPORT INFORMATION
  Report Type: 
  Country: None (occurrence: None)
  Receive Date: 20100806
  Receipt Date: 20100728
  Transmission Date: 20110219
  Serious: Yes (Other)
  Sender: FDA-Public Use
  Company Number: AR-B.I. PHARMACEUTICALS,INC./RIDGEFIELD-2010-BP-08625BP

PATIENT
  Age: 33 Year
  Sex: Female

DRUGS (14)
  1. VIRAMUNE [Suspect]
     Indication: ANTIRETROVIRAL THERAPY
     Route: 048
     Dates: start: 20050622, end: 20050705
  2. VIRAMUNE [Suspect]
     Route: 048
     Dates: start: 20050706
  3. COMBIVIR [Concomitant]
     Indication: ANTIRETROVIRAL THERAPY
     Route: 048
     Dates: start: 20050622, end: 20050716
  4. BACTRIM [Concomitant]
  5. CEFTRIAXONE [Concomitant]
  6. ETHAMBUTOL HYDROCHLORIDE [Concomitant]
  7. FERROUS SULFATE [Concomitant]
  8. FLUCONAZOLE [Concomitant]
  9. FOLIC ACID [Concomitant]
  10. IBUPROFEN TABLETS [Concomitant]
  11. ISONIAZID [Concomitant]
  12. PYRAZINAMIDE [Concomitant]
  13. RANITIDINE [Concomitant]
  14. RIFAMPICIN [Concomitant]

REACTIONS (1)
  - STILLBIRTH [None]
